FAERS Safety Report 4386893-5 (Version None)
Quarter: 2004Q2

REPORT INFORMATION
  Report Type: 
  Country: None (occurrence: None)
  Receive Date: 20040625
  Receipt Date: 20040615
  Transmission Date: 20050107
  Serious: Yes (Hospitalization)
  Sender: FDA-Public Use
  Company Number: 2004219410FR

PATIENT
  Age: 51 Year
  Sex: Male
  Weight: 69 kg

DRUGS (9)
  1. SOLU-MEDROL [Suspect]
     Dosage: IV
     Route: 042
     Dates: start: 20040407, end: 20040412
  2. BACTRIM [Suspect]
     Indication: URINARY TRACT INFECTION
     Dosage: 2 DF, QD, ORAL
     Route: 048
     Dates: start: 20040407, end: 20040412
  3. ANAFRANIL [Concomitant]
  4. ELAVIL [Concomitant]
  5. VALIUM [Concomitant]
  6. LIORESAL ^NOVARTIS^ [Concomitant]
  7. TERCIAN (CYAMEMAZINE) [Concomitant]
  8. HEXAQUINE (NIAOULI OIL) [Concomitant]
  9. MESTINON [Concomitant]

REACTIONS (5)
  - ALANINE AMINOTRANSFERASE INCREASED [None]
  - ASPARTATE AMINOTRANSFERASE INCREASED [None]
  - GAMMA-GLUTAMYLTRANSFERASE INCREASED [None]
  - HYPOXIA [None]
  - INTERSTITIAL LUNG DISEASE [None]
